FAERS Safety Report 6125679-8 (Version None)
Quarter: 2009Q1

REPORT INFORMATION
  Report Type: 
  Country: None (occurrence: None)
  Receive Date: 20090320
  Receipt Date: 20090309
  Transmission Date: 20090719
  Serious: Yes (Other)
  Sender: FDA-Public Use
  Company Number: PHHY2009IT03320

PATIENT
  Sex: Female

DRUGS (6)
  1. GLEEVEC [Suspect]
     Indication: CHRONIC MYELOID LEUKAEMIA
     Dosage: 300 MG/DAY
     Route: 048
     Dates: start: 20020201, end: 20090115
  2. GLEEVEC [Suspect]
     Dosage: 200 MG/DAY
     Route: 048
  3. ALLOPURINOL [Concomitant]
     Dosage: 100 MG, UNK
  4. OMEPRAZOLE [Concomitant]
     Dosage: 20 MG, UNK
     Route: 048
  5. FUROSEMIDE [Concomitant]
     Dosage: 25 MG, UNK
     Route: 048
  6. BENTELAN [Concomitant]
     Dosage: 1 MG, UNK
     Route: 048

REACTIONS (3)
  - BURNING SENSATION [None]
  - ERYTHROMELALGIA [None]
  - PAIN IN EXTREMITY [None]
